FAERS Safety Report 9093248 (Version 1)
Quarter: 2013Q1

REPORT INFORMATION
  Report Type: Spontaneous
  Country: US (occurrence: None)
  Receive Date: 20130213
  Receipt Date: 20130213
  Transmission Date: 20140127
  Serious: Yes (Other)
  Sender: FDA-Public Use
  Company Number: None

PATIENT
  Sex: Male
  Weight: 47.17 kg

DRUGS (1)
  1. LEVETIRACETAM [Suspect]
     Indication: EPILEPSY
     Dosage: 500MG 1MG 1 PILL IN THE MORNING AND 500 MG , 1 PILL IN THE EVENING.
     Dates: start: 20121224, end: 20130123

REACTIONS (14)
  - Personality change [None]
  - Aggression [None]
  - Suicide attempt [None]
  - Intentional self-injury [None]
  - Convulsion [None]
  - Dyspnoea [None]
  - Fibromyalgia [None]
  - Neuralgia [None]
  - Abasia [None]
  - Panic reaction [None]
  - Wheelchair user [None]
  - Tachycardia [None]
  - Visual impairment [None]
  - Soliloquy [None]
